FAERS Safety Report 4971348-7 (Version None)
Quarter: 2006Q2

REPORT INFORMATION
  Report Type: 
  Country: None (occurrence: None)
  Receive Date: 20060406
  Receipt Date: 20060328
  Transmission Date: 20061013
  Serious: Yes (Death)
  Sender: FDA-Public Use
  Company Number: 200611192GDS

PATIENT
  Age: 78 Year
  Sex: Male
  Weight: 59 kg

DRUGS (8)
  1. ACETYLSALICYLIC ACID SRT [Suspect]
     Dosage: 100 MG, TOTAL DAILY, ORAL
     Route: 048
     Dates: end: 20060206
  2. PLAVIX [Suspect]
     Indication: CEREBROVASCULAR DISORDER
     Dosage: 75 MG, QD, ORAL
     Route: 048
     Dates: start: 20051227, end: 20060206
  3. DAPSONE [Suspect]
     Indication: HIDRADENITIS
     Dosage: 100 MG, QD, ORAL
     Route: 048
     Dates: start: 20051227, end: 20060206
  4. OMEPRAZOLE [Suspect]
     Indication: DIAPHRAGMATIC HERNIA
     Dosage: 20 MG, TOTAL DAILY, ORAL
     Route: 048
     Dates: end: 20060217
  5. DIGOXIN [Suspect]
     Indication: ATRIAL FIBRILLATION
     Dosage: 250 UG, TOTAL DAILY, ORAL
     Dates: end: 20060217
  6. OPTOVITE B12 (CYANOCOBALAMIN) [Suspect]
     Indication: GASTRITIS ATROPHIC
     Dosage: Q1MON, INTRAMUSCULAR
     Route: 030
  7. SINTROM [Suspect]
     Indication: ATRIAL FIBRILLATION
     Dosage: ORAL
     Route: 048
     Dates: end: 20060217
  8. VENTOLIN [Concomitant]

REACTIONS (3)
  - ACUTE PULMONARY OEDEMA [None]
  - AGRANULOCYTOSIS [None]
  - PNEUMONIA [None]
